FAERS Safety Report 22250647 (Version 2)
Quarter: 2023Q2

REPORT INFORMATION
  Report Type: Spontaneous
  Country: US (occurrence: US)
  Receive Date: 20230425
  Receipt Date: 20230426
  Transmission Date: 20230721
  Serious: No
  Sender: FDA-Public Use
  Company Number: US-PFIZER INC-PV202300025962

PATIENT
  Age: 63 Year
  Sex: Male

DRUGS (4)
  1. LORBRENA [Suspect]
     Active Substance: LORLATINIB
     Indication: Lung neoplasm malignant
     Dosage: 100 MG
  2. LORBRENA [Suspect]
     Active Substance: LORLATINIB
     Indication: Anaplastic large cell lymphoma T- and null-cell types
  3. LORBRENA [Suspect]
     Active Substance: LORLATINIB
     Indication: ALK gene rearrangement positive
  4. LORBRENA [Suspect]
     Active Substance: LORLATINIB
     Indication: Lymphadenopathy

REACTIONS (1)
  - Malaise [Unknown]
